FAERS Safety Report 23307420 (Version 1)
Quarter: 2023Q4

REPORT INFORMATION
  Report Type: Spontaneous
  Country: CA (occurrence: None)
  Receive Date: 20231218
  Receipt Date: 20231218
  Transmission Date: 20240109
  Serious: Yes (Other)
  Sender: FDA-Public Use
  Company Number: CA-PFIZER INC-202300442864

PATIENT
  Age: 57 Year
  Sex: Female

DRUGS (12)
  1. METHOTREXATE [Suspect]
     Active Substance: METHOTREXATE
     Indication: Crohn^s disease
  2. METHOTREXATE [Suspect]
     Active Substance: METHOTREXATE
     Indication: Psoriasis
     Dates: start: 20230530, end: 202306
  3. ATIVAN [Concomitant]
     Active Substance: LORAZEPAM
     Dosage: 1 DF UNKNOWN DOSE
  4. BUSPIRONE [Concomitant]
     Active Substance: BUSPIRONE HYDROCHLORIDE
     Dosage: DOSE: 2.5-5MG BID
  5. ENTOCORT [Concomitant]
     Active Substance: BUDESONIDE
     Indication: Crohn^s disease
  6. ENTOCORT [Concomitant]
     Active Substance: BUDESONIDE
  7. ESCITALOPRAM [Concomitant]
     Active Substance: ESCITALOPRAM OXALATE
  8. FOLIC ACID [Concomitant]
     Active Substance: FOLIC ACID
  9. INDERAL [Concomitant]
     Active Substance: PROPRANOLOL HYDROCHLORIDE
  10. QUETIAPINE [Concomitant]
     Active Substance: QUETIAPINE
     Dosage: 1 DF (DOSE: 6.25-12.25 MG QHS)
  11. SUMATRIPTAN [Concomitant]
     Active Substance: SUMATRIPTAN
     Dosage: 1 DF UNKNOWN DOSE
  12. THYROXINE [Concomitant]
     Active Substance: LEVOTHYROXINE

REACTIONS (8)
  - Condition aggravated [Recovering/Resolving]
  - Product use in unapproved indication [Unknown]
  - Drug intolerance [Unknown]
  - Migraine [Not Recovered/Not Resolved]
  - Dry eye [Unknown]
  - Arthralgia [Not Recovered/Not Resolved]
  - Nausea [Recovering/Resolving]
  - Fatigue [Recovering/Resolving]
